FAERS Safety Report 7980527-6 (Version None)
Quarter: 2011Q4

REPORT INFORMATION
  Report Type: 
  Country: None (occurrence: None)
  Receive Date: 20111214
  Receipt Date: 20111205
  Transmission Date: 20120403
  Serious: Yes (Hospitalization)
  Sender: FDA-Public Use
  Company Number: JP-GLAXOSMITHKLINE-B0767702A

PATIENT
  Age: 28 Year
  Sex: Female

DRUGS (1)
  1. ACYCLOVIR [Suspect]
     Indication: HERPES ZOSTER
     Route: 048

REACTIONS (15)
  - ALANINE AMINOTRANSFERASE INCREASED [None]
  - BACK PAIN [None]
  - HEPATITIS B SURFACE ANTIGEN POSITIVE [None]
  - ASPARTATE AMINOTRANSFERASE INCREASED [None]
  - BLOOD BILIRUBIN INCREASED [None]
  - JAUNDICE [None]
  - PROTHROMBIN LEVEL DECREASED [None]
  - HEPATITIS B [None]
  - HEPATITIS B SURFACE ANTIBODY POSITIVE [None]
  - GALLBLADDER DISORDER [None]
  - MALAISE [None]
  - MATERNAL EXPOSURE DURING PREGNANCY [None]
  - NAUSEA [None]
  - ASPARTATE AMINOTRANSFERASE ABNORMAL [None]
  - ALANINE AMINOTRANSFERASE ABNORMAL [None]
